FAERS Safety Report 20858382 (Version 1)
Quarter: 2022Q2

REPORT INFORMATION
  Report Type: Spontaneous
  Country: CH (occurrence: CH)
  Receive Date: 20220521
  Receipt Date: 20220521
  Transmission Date: 20220720
  Serious: Yes (Hospitalization)
  Sender: FDA-Public Use
  Company Number: None

PATIENT
  Age: 72 Year
  Sex: Male
  Weight: 85 kg

DRUGS (4)
  1. VANCOCIN [Suspect]
     Active Substance: VANCOMYCIN HYDROCHLORIDE
     Dosage: 1250MG, FREQUENCY TIME 12HRS, DURATION 7DAYS
     Route: 042
     Dates: start: 20220210, end: 20220217
  2. MEROPENEM [Concomitant]
     Active Substance: MEROPENEM
     Dosage: 27.01. - 11.02.22 UND 17.02. -27.02.22,DURATION 31DAYS
     Route: 042
     Dates: start: 20220127, end: 20220227
  3. DIFLUCAN [Concomitant]
     Active Substance: FLUCONAZOLE
     Dosage: DURATION 14DAYS
     Route: 042
     Dates: start: 20220211, end: 20220225
  4. PIPERACILLIN SODIUM\TAZOBACTAM SODIUM [Concomitant]
     Active Substance: PIPERACILLIN SODIUM\TAZOBACTAM SODIUM
     Dosage: DURATION 1DAYS
     Route: 042
     Dates: start: 20220126, end: 20220127

REACTIONS (1)
  - Acute kidney injury [Recovering/Resolving]

NARRATIVE: CASE EVENT DATE: 20220216
